FAERS Safety Report 12069230 (Version 1)
Quarter: 2016Q1

REPORT INFORMATION
  Report Type: Spontaneous
  Country: US (occurrence: None)
  Receive Date: 20160211
  Receipt Date: 20160211
  Transmission Date: 20160526
  Serious: No
  Sender: FDA-Public Use
  Company Number: None

PATIENT
  Age: 77 Year
  Sex: Female
  Weight: 117.94 kg

DRUGS (8)
  1. PROPANOLOL [Suspect]
     Active Substance: PROPRANOLOL HYDROCHLORIDE
  2. LYRICA [Suspect]
     Active Substance: PREGABALIN
  3. PRAVASTATIN [Suspect]
     Active Substance: PRAVASTATIN\PRAVASTATIN SODIUM
  4. LEVOFLOXACIN. [Suspect]
     Active Substance: LEVOFLOXACIN
     Indication: SINUSITIS
     Dosage: 5 PILLS 1 TIME DAILY FOR 5 DAYS MOUTH
     Route: 048
     Dates: start: 20160106, end: 20160109
  5. METFORMIN [Suspect]
     Active Substance: METFORMIN HYDROCHLORIDE
  6. ROBITUSSIN (GUAIFENESIN) [Suspect]
     Active Substance: GUAIFENESIN
  7. SYMBICORT [Suspect]
     Active Substance: BUDESONIDE\FORMOTEROL FUMARATE DIHYDRATE
  8. MELOXICAM. [Suspect]
     Active Substance: MELOXICAM

REACTIONS (3)
  - Gait disturbance [None]
  - Activities of daily living impaired [None]
  - Haematoma [None]

NARRATIVE: CASE EVENT DATE: 20160115
